FAERS Safety Report 5450697-2 (Version None)
Quarter: 2007Q3

REPORT INFORMATION
  Report Type: 
  Country: None (occurrence: None)
  Receive Date: 20070910
  Receipt Date: 20070824
  Transmission Date: 20080115
  Serious: Yes (Death)
  Sender: FDA-Public Use
  Company Number: SPV1-2007-03699

PATIENT
  Age: 22 Year
  Sex: Male
  Weight: 79.9 kg

DRUGS (1)
  1. 489 (LISDEXAMFETAMINE DIMESYLATE)(489 (LISDEXAMFETAMINE DIMESYLATE) CA [Suspect]
     Indication: ATTENTION DEFICIT/HYPERACTIVITY DISORDER
     Dosage: 50 MG, 1X/DAY: QD, ORAL
     Route: 048
     Dates: start: 20060907

REACTIONS (11)
  - ABNORMAL BEHAVIOUR [None]
  - ALCOHOL POISONING [None]
  - CARDIO-RESPIRATORY ARREST [None]
  - CHOKING [None]
  - DRUG ABUSER [None]
  - DRUG TOXICITY [None]
  - GRAND MAL CONVULSION [None]
  - MIGRAINE [None]
  - PUPIL FIXED [None]
  - UNRESPONSIVE TO STIMULI [None]
  - VOMITING [None]
